FAERS Safety Report 10738350 (Version 1)
Quarter: 2015Q1

REPORT INFORMATION
  Report Type: Spontaneous
  Country: US (occurrence: None)
  Receive Date: 20150122
  Receipt Date: 20150122
  Transmission Date: 20150721
  Serious: Yes (Other)
  Sender: FDA-Public Use
  Company Number: None

PATIENT
  Age: 80 Year
  Sex: Male
  Weight: 93.9 kg

DRUGS (1)
  1. CYANOCOBALAMIN 1000 MCG APP PHARMACEUTICALS [Suspect]
     Active Substance: CYANOCOBALAMIN
     Indication: VITAMIN B12 DECREASED
     Route: 030

REACTIONS (3)
  - Aggression [None]
  - Product substitution issue [None]
  - Vomiting [None]

NARRATIVE: CASE EVENT DATE: 20141215
